FAERS Safety Report 9258768 (Version 2)
Quarter: 2013Q2

REPORT INFORMATION
  Report Type: Spontaneous
  Country: US (occurrence: US)
  Receive Date: 20130426
  Receipt Date: 20130426
  Transmission Date: 20140414
  Serious: Yes (Other)
  Sender: FDA-Public Use
  Company Number: US-BRISTOL-MYERS SQUIBB COMPANY-17042151

PATIENT
  Age: 65 Year
  Sex: Female
  Weight: 63.94 kg

DRUGS (6)
  1. SPRYCEL (CML) TABS 100 MG [Suspect]
     Indication: CHRONIC MYELOID LEUKAEMIA
     Dates: start: 20121012
  2. AZO-STANDARD [Suspect]
     Indication: URINARY TRACT INFECTION
  3. HYDROXYUREA [Concomitant]
  4. LISINOPRIL [Concomitant]
  5. LIPITOR [Concomitant]
  6. ALLOPURINOL [Concomitant]

REACTIONS (10)
  - Gallbladder disorder [Unknown]
  - Chest discomfort [Recovered/Resolved]
  - Lacrimation increased [Unknown]
  - Weight increased [Unknown]
  - Nasopharyngitis [Unknown]
  - Productive cough [Unknown]
  - White blood cell count decreased [Unknown]
  - Red blood cell count decreased [Unknown]
  - Diarrhoea [Unknown]
  - Hypertension [Unknown]
